FAERS Safety Report 16473437 (Version 2)
Quarter: 2019Q3

REPORT INFORMATION
  Report Type: Report from Study
  Country: CA (occurrence: CA)
  Receive Date: 20190625
  Receipt Date: 20190917
  Transmission Date: 20191004
  Serious: Yes (Hospitalization, Other)
  Sender: FDA-Public Use
  Company Number: CA-ROCHE-2230930

PATIENT
  Age: 55 Year
  Sex: Female

DRUGS (23)
  1. MORPHIN [MORPHINE HYDROCHLORIDE] [Concomitant]
     Active Substance: MORPHINE HYDROCHLORIDE
  2. HYDROXYCHLOROQUINE [Concomitant]
     Active Substance: HYDROXYCHLOROQUINE
  3. ATORVASTATIN [Concomitant]
     Active Substance: ATORVASTATIN
  4. RITUXAN [Suspect]
     Active Substance: RITUXIMAB
     Indication: RHEUMATOID ARTHRITIS
     Route: 042
     Dates: start: 20161209
  5. METHOTREXATE. [Concomitant]
     Active Substance: METHOTREXATE
  6. MODAFINIL. [Concomitant]
     Active Substance: MODAFINIL
  7. GLYBURIDE. [Concomitant]
     Active Substance: GLYBURIDE
  8. DOCUSATE [Concomitant]
     Active Substance: DOCUSATE
  9. DULOXETINE. [Concomitant]
     Active Substance: DULOXETINE
  10. SOLU-MEDROL [Concomitant]
     Active Substance: METHYLPREDNISOLONE SODIUM SUCCINATE
     Dosage: ONGOING:YES
     Route: 042
     Dates: start: 20161209
  11. SPIRIVA [Concomitant]
     Active Substance: TIOTROPIUM BROMIDE MONOHYDRATE
  12. EURO D [Concomitant]
  13. PREGABALIN. [Concomitant]
     Active Substance: PREGABALIN
  14. ALENDRONATE [Concomitant]
     Active Substance: ALENDRONATE SODIUM
  15. PANTOPRAZOLE [Concomitant]
     Active Substance: PANTOPRAZOLE
  16. MORPHINE [Concomitant]
     Active Substance: MORPHINE
  17. TYLENOL [Concomitant]
     Active Substance: ACETAMINOPHEN
     Dosage: ONGOING:YES
     Route: 048
     Dates: start: 20161209
  18. BENADRYL [Concomitant]
     Active Substance: DIPHENHYDRAMINE HYDROCHLORIDE
     Dosage: ONGOING:YES
     Route: 048
     Dates: start: 20161209
  19. DILAUDID [Concomitant]
     Active Substance: HYDROMORPHONE HYDROCHLORIDE
  20. NABILONE [Concomitant]
     Active Substance: NABILONE
  21. SULFASALAZINE. [Concomitant]
     Active Substance: SULFASALAZINE
  22. FOLIC ACID. [Concomitant]
     Active Substance: FOLIC ACID
  23. PREDNISONE. [Concomitant]
     Active Substance: PREDNISONE

REACTIONS (11)
  - Blood pressure increased [Unknown]
  - Fall [Unknown]
  - Blood pressure systolic increased [Unknown]
  - Oxygen saturation decreased [Unknown]
  - Fall [Unknown]
  - Spinal pain [Unknown]
  - Spinal compression fracture [Unknown]
  - Upper limb fracture [Unknown]
  - Blood pressure systolic abnormal [Unknown]
  - Back pain [Not Recovered/Not Resolved]
  - Body temperature decreased [Unknown]

NARRATIVE: CASE EVENT DATE: 201811
